FAERS Safety Report 4343584-4 (Version None)
Quarter: 2004Q2

REPORT INFORMATION
  Report Type: 
  Country: None (occurrence: None)
  Receive Date: 20040419
  Receipt Date: 20040402
  Transmission Date: 20050107
  Serious: Yes (Other)
  Sender: FDA-Public Use
  Company Number: 04-112-0150

PATIENT
  Age: 4 Year
  Sex: Male
  Weight: 20.4119 kg

DRUGS (14)
  1. METHOTREXATE INJ,. UNKNOWN STRENGTH, BEN VENUE LAB [Suspect]
     Indication: ACUTE LYMPHOCYTIC LEUKAEMIA
     Dosage: ORAL TABLETS AND IV
     Dates: start: 20031001
  2. MERCAPTOPURINE [Suspect]
     Indication: ACUTE LYMPHOCYTIC LEUKAEMIA
     Dosage: ORAL TABLETS
     Route: 048
     Dates: start: 20031001
  3. MERCAPTOPURINE [Concomitant]
  4. METHOTREXATE [Concomitant]
  5. VINCRISTINE [Concomitant]
  6. DECADRON [Concomitant]
  7. DAPSONE [Concomitant]
  8. COLACE [Concomitant]
  9. ZANTAC [Concomitant]
  10. NYSTATIN [Concomitant]
  11. PERIDEX [Concomitant]
  12. ZOFRAN [Concomitant]
  13. HYDROMORPHONE [Concomitant]
  14. LORATADINE [Concomitant]

REACTIONS (3)
  - HYPOGLYCAEMIA [None]
  - INCOHERENT [None]
  - SOMNOLENCE [None]
